FAERS Safety Report 9213331 (Version 2)
Quarter: 2013Q4

REPORT INFORMATION
  Report Type: Spontaneous
  Country: GB (occurrence: GB)
  Receive Date: 20130405
  Receipt Date: 20131010
  Transmission Date: 20140711
  Serious: Yes (Other)
  Sender: FDA-Public Use
  Company Number: PHFR2013GB001975

PATIENT
  Sex: 0

DRUGS (5)
  1. INTERFERON BETA-1B [Suspect]
     Indication: MULTIPLE SCLEROSIS
     Dosage: 8 MIU, QOD
     Route: 030
     Dates: start: 20091102
  2. BACLOFEN [Concomitant]
  3. DIAZEPAM [Concomitant]
  4. GABAPENTIN [Concomitant]
  5. PARACETAMOL [Concomitant]

REACTIONS (1)
  - Malignant melanoma [Not Recovered/Not Resolved]
